FAERS Safety Report 4547865-0 (Version None)
Quarter: 2004Q4

REPORT INFORMATION
  Report Type: 
  Country: None (occurrence: None)
  Receive Date: 20041227
  Receipt Date: 20041118
  Transmission Date: 20050328
  Serious: No
  Sender: FDA-Public Use
  Company Number: 04P-163-0280998-00

PATIENT
  Age: 56 Year
  Sex: Female
  Weight: 88.4514 kg

DRUGS (11)
  1. HUMIRA [Suspect]
     Indication: RHEUMATOID ARTHRITIS
     Dosage: SEE IMAGE
     Route: 058
     Dates: start: 20040220, end: 20040513
  2. HUMIRA [Suspect]
     Indication: RHEUMATOID ARTHRITIS
     Dosage: SEE IMAGE
     Route: 058
     Dates: start: 20040513
  3. DIPHENHYDRAMINE HYDROCHLOIDE [Concomitant]
  4. AZATHIOPRINE [Concomitant]
  5. METOPROLOL SUCCINATE [Concomitant]
  6. LOTREL [Concomitant]
  7. LEVOTHYROXINE SODIUM [Concomitant]
  8. PREDNISONE [Concomitant]
  9. CALCIUM GLUCONATE [Concomitant]
  10. MULTI-VITAMINS [Concomitant]
  11. LORAZEPAM [Concomitant]

REACTIONS (3)
  - ABDOMINAL PAIN [None]
  - EAR INFECTION [None]
  - LYMPHADENOPATHY [None]
